FAERS Safety Report 12010192 (Version 2)
Quarter: 2016Q2

REPORT INFORMATION
  Report Type: Spontaneous
  Country: US (occurrence: US)
  Receive Date: 20160205
  Receipt Date: 20160505
  Transmission Date: 20160815
  Serious: Yes (Death, Hospitalization, Other)
  Sender: FDA-Public Use
  Company Number: US-PFIZER INC-2016063047

PATIENT
  Age: 53 Year
  Sex: Male

DRUGS (10)
  1. DEPO-TESTOSTERONE [Suspect]
     Active Substance: TESTOSTERONE CYPIONATE
     Indication: HORMONE REPLACEMENT THERAPY
     Dosage: UNK
     Dates: start: 200010
  2. ANDRODERM [Suspect]
     Active Substance: TESTOSTERONE
     Indication: HORMONE REPLACEMENT THERAPY
     Dosage: UNK
     Dates: start: 200010
  3. ANDROGEL [Suspect]
     Active Substance: TESTOSTERONE
     Indication: HORMONE REPLACEMENT THERAPY
     Dosage: UNK, DAILY (APPLIED EVERY DAY)
     Dates: start: 20050427, end: 20050917
  4. DELATESTRYL [Suspect]
     Active Substance: TESTOSTERONE ENANTHATE
     Indication: HORMONE REPLACEMENT THERAPY
     Dosage: UNK, MONTHLY (ONCE PER MONTH)
     Dates: start: 20001013, end: 20021107
  5. DEPO-TESTOSTERONE [Suspect]
     Active Substance: TESTOSTERONE CYPIONATE
     Dosage: UNK, MONTHLY (ONCE PER MONTH)
     Dates: start: 20101024, end: 20101124
  6. DEPO-TESTOSTERONE [Suspect]
     Active Substance: TESTOSTERONE CYPIONATE
     Dosage: UNK, MONTHLY (ONCE PER MONTH)
     Dates: start: 20080214, end: 20090127
  7. ANDRODERM [Suspect]
     Active Substance: TESTOSTERONE
     Dosage: UNK, DAILY (APPLIED ONE PATCH TO SKIN EVERY MORNING)
     Dates: start: 20050328, end: 20051028
  8. DEPO-TESTOSTERONE [Suspect]
     Active Substance: TESTOSTERONE CYPIONATE
     Dosage: UNK, MONTHLY (ONCE PER MONTH)
     Dates: start: 20110708, end: 20111027
  9. DEPO-TESTOSTERONE [Suspect]
     Active Substance: TESTOSTERONE CYPIONATE
     Dosage: UNK, MONTHLY (ONCE PER MONTH)
     Dates: start: 20140718, end: 20140921
  10. DELATESTRYL [Suspect]
     Active Substance: TESTOSTERONE ENANTHATE
     Dosage: UNK, MONTHLY (ONCE PER MONTH)
     Dates: start: 20130802, end: 20140723

REACTIONS (4)
  - Transient ischaemic attack [Unknown]
  - Cerebrovascular accident [Unknown]
  - Cardiac arrest [Fatal]
  - Pulmonary embolism [Unknown]

NARRATIVE: CASE EVENT DATE: 20011026
